APPROVED DRUG PRODUCT: BUTALBITAL, ACETAMINOPHEN AND CAFFEINE
Active Ingredient: ACETAMINOPHEN; BUTALBITAL; CAFFEINE
Strength: 325MG;50MG;40MG
Dosage Form/Route: TABLET;ORAL
Application: A040601 | Product #001
Applicant: SUN PHARMACEUTICAL INDUSTRIES INC
Approved: Jul 29, 2005 | RLD: No | RS: No | Type: DISCN